FAERS Safety Report 25751934 (Version 1)
Quarter: 2025Q3

REPORT INFORMATION
  Report Type: Spontaneous
  Country: IN (occurrence: IN)
  Receive Date: 20250902
  Receipt Date: 20250902
  Transmission Date: 20251020
  Serious: Yes (Death, Other)
  Sender: PURDUE
  Company Number: IN-PURDUE PHARMA-USA-2025-0320104

PATIENT

DRUGS (4)
  1. BUPRENORPHINE [Suspect]
     Active Substance: BUPRENORPHINE
     Indication: Product used for unknown indication
     Dosage: 4.8 MILLIGRAM, DAILY
     Route: 064
  2. BUPRENORPHINE [Suspect]
     Active Substance: BUPRENORPHINE
     Dosage: 4.8 MILLIGRAM, DAILY
     Route: 063
  3. HEROIN [Suspect]
     Active Substance: DIAMORPHINE
     Indication: Product used for unknown indication
     Dosage: 1 GRAM, DAILY
     Route: 064
  4. HEROIN [Suspect]
     Active Substance: DIAMORPHINE
     Dosage: 1 GRAM, DAILY
     Route: 063

REACTIONS (3)
  - Sepsis [Fatal]
  - Foetal exposure during pregnancy [Unknown]
  - Drug withdrawal syndrome neonatal [Unknown]
